FAERS Safety Report 10119523 (Version 3)
Quarter: 2014Q2

REPORT INFORMATION
  Report Type: Spontaneous
  Country: CN (occurrence: CN)
  Receive Date: 20140425
  Receipt Date: 20140521
  Transmission Date: 20141212
  Serious: Yes (Hospitalization)
  Sender: FDA-Public Use
  Company Number: CN-JNJFOC-20140413354

PATIENT
  Age: 12 Month
  Sex: Male
  Weight: 11 kg

DRUGS (4)
  1. MOTRIN [Suspect]
     Route: 048
  2. MOTRIN [Suspect]
     Indication: PYREXIA
     Route: 048
     Dates: start: 20130404, end: 20130410
  3. PARACETAMOL [Suspect]
     Indication: PRODUCT USED FOR UNKNOWN INDICATION
     Route: 048
  4. XIYANPING ZHUSHEYE [Concomitant]
     Indication: PRODUCT USED FOR UNKNOWN INDICATION
     Route: 065

REACTIONS (3)
  - Body temperature fluctuation [Recovered/Resolved]
  - Asthma [Recovering/Resolving]
  - Hepatic enzyme increased [Recovered/Resolved]
